FAERS Safety Report 9379071 (Version 2)
Quarter: 2013Q3

REPORT INFORMATION
  Report Type: Spontaneous
  Country: US (occurrence: None)
  Receive Date: 20130626
  Receipt Date: 20130725
  Transmission Date: 20140515
  Serious: Yes (Hospitalization, Other)
  Sender: FDA-Public Use
  Company Number: US-1198967

PATIENT
  Age: 87 Year
  Sex: Male
  Weight: 65.77 kg

DRUGS (1)
  1. TRAVATAN Z 0.004 % OPHTHALMIC SOLUTION [Suspect]
     Indication: GLAUCOMA
     Route: 047
     Dates: start: 20130101, end: 2013

REACTIONS (12)
  - Intraocular pressure increased [None]
  - Temporal arteritis [None]
  - Pain in jaw [None]
  - Optic nerve injury [None]
  - Dizziness [None]
  - Balance disorder [None]
  - Hallucination [None]
  - Vision blurred [None]
  - Eye irritation [None]
  - Conjunctival hyperaemia [None]
  - Headache [None]
  - Blindness unilateral [None]
